FAERS Safety Report 18703542 (Version 1)
Quarter: 2021Q1

REPORT INFORMATION
  Report Type: Spontaneous
  Country: US (occurrence: US)
  Receive Date: 20210105
  Receipt Date: 20210105
  Transmission Date: 20210419
  Serious: No
  Sender: FDA-Public Use
  Company Number: US-BAUSCH-BL-2020-036637

PATIENT
  Age: 69 Year
  Sex: Female
  Weight: 51.3 kg

DRUGS (5)
  1. BEPREVE [Suspect]
     Active Substance: BEPOTASTINE BESILATE
     Indication: PRODUCT USE IN UNAPPROVED INDICATION
     Route: 047
     Dates: end: 202012
  2. ALREX [Suspect]
     Active Substance: LOTEPREDNOL ETABONATE
     Indication: PERIORBITAL SWELLING
     Dosage: TWO TO THREE YEARS AGO PRIOR TO THE DATE OF THIS REPORT
     Route: 047
  3. BEPREVE [Suspect]
     Active Substance: BEPOTASTINE BESILATE
     Indication: EYE ALLERGY
     Dosage: ABOUT ONE TO TWO YEARS AGO PRIOR TO THE DATE OF THIS REPORT
     Route: 047
  4. BEPREVE [Suspect]
     Active Substance: BEPOTASTINE BESILATE
     Dosage: FOUR TO FIVE DAYS AGO PRIOR TO THE DATE OF THIS REPORT
     Route: 047
     Dates: start: 202012
  5. ALREX [Suspect]
     Active Substance: LOTEPREDNOL ETABONATE
     Indication: PRODUCT USE IN UNAPPROVED INDICATION

REACTIONS (5)
  - Therapy interrupted [Unknown]
  - Intentional product use issue [Unknown]
  - Product use in unapproved indication [Unknown]
  - Eye irritation [Unknown]
  - Therapeutic product effective for unapproved indication [Unknown]

NARRATIVE: CASE EVENT DATE: 202012
